FAERS Safety Report 17056863 (Version 1)
Quarter: 2019Q4

REPORT INFORMATION
  Report Type: Report from Study
  Country: None (occurrence: BG)
  Receive Date: 20191121
  Receipt Date: 20191121
  Transmission Date: 20200122
  Serious: Yes (Death)
  Sender: FDA-Public Use
  Company Number: BG-ABBVIE-19K-022-3011249-00

PATIENT
  Age: 73 Year
  Sex: Male

DRUGS (1)
  1. DUODOPA [Suspect]
     Active Substance: CARBIDOPA\LEVODOPA
     Indication: PARKINSON^S DISEASE
     Dosage: MD- 11 ML??CR- 3.3 ML/H??EX- 1.0 ML
     Route: 050
     Dates: start: 20171010, end: 20191120

REACTIONS (1)
  - Angiopathy [Fatal]

NARRATIVE: CASE EVENT DATE: 20191120
